FAERS Safety Report 6690607-3 (Version None)
Quarter: 2010Q2

REPORT INFORMATION
  Report Type: 
  Country: None (occurrence: None)
  Receive Date: 20100421
  Receipt Date: 20100413
  Transmission Date: 20101027
  Serious: Yes (Hospitalization)
  Sender: FDA-Public Use
  Company Number: B0648527A

PATIENT
  Sex: Male
  Weight: 105 kg

DRUGS (5)
  1. MELPHALAN HYDROCHLORIDE [Suspect]
     Dosage: 10MG AS DIRECTED
     Route: 048
     Dates: start: 20091026
  2. VELCADE [Suspect]
     Dosage: 2MG AS DIRECTED
     Route: 042
     Dates: start: 20091026, end: 20100117
  3. DEXAMETHASONE [Suspect]
     Dosage: 480MG MONTHLY
     Route: 048
     Dates: start: 20091026
  4. BACTRIM [Concomitant]
     Indication: INFECTION PROPHYLAXIS
     Route: 048
     Dates: start: 20090101
  5. VALACICLOVIR [Concomitant]
     Indication: INFECTION PROPHYLAXIS
     Route: 048
     Dates: start: 20090101

REACTIONS (4)
  - DYSPNOEA [None]
  - LOCAL SWELLING [None]
  - SWELLING FACE [None]
  - THROMBOSIS [None]
